FAERS Safety Report 25330540 (Version 1)
Quarter: 2025Q2

REPORT INFORMATION
  Report Type: Report from Study
  Country: TH (occurrence: TH)
  Receive Date: 20250519
  Receipt Date: 20250519
  Transmission Date: 20250717
  Serious: Yes (Hospitalization, Other)
  Sender: IPSEN BIOPHARMACEUTICALS, INC.
  Company Number: TH-IPSEN Group, Research and Development-2024-22001

PATIENT
  Age: 48 Year
  Sex: Male

DRUGS (2)
  1. LANREOTIDE ACETATE [Suspect]
     Active Substance: LANREOTIDE ACETATE
     Indication: Gastroenteropancreatic neuroendocrine tumour disease
     Dosage: DEEP SUBCUTANEOUS INJECTION
     Route: 058
     Dates: start: 20240423
  2. LANREOTIDE ACETATE [Suspect]
     Active Substance: LANREOTIDE ACETATE
     Dosage: DEEP SUBCUTANEOUS INJECTION
     Route: 058
     Dates: start: 20250304

REACTIONS (9)
  - Constipation [Unknown]
  - Anaemia [Unknown]
  - Gastrointestinal haemorrhage [Unknown]
  - Epistaxis [Unknown]
  - Sepsis [Recovering/Resolving]
  - Mouth haemorrhage [Unknown]
  - Pneumonia [Unknown]
  - Gastric ulcer [Unknown]
  - Tracheostomy [Unknown]

NARRATIVE: CASE EVENT DATE: 20250507
